FAERS Safety Report 12732839 (Version 1)
Quarter: 2016Q3

REPORT INFORMATION
  Report Type: Spontaneous
  Country: US (occurrence: US)
  Receive Date: 20160912
  Receipt Date: 20160912
  Transmission Date: 20161109
  Serious: No
  Sender: FDA-Public Use
  Company Number: US-BRISTOL-MYERS SQUIBB COMPANY-BMS-2016-071703

PATIENT
  Age: 82 Year
  Sex: Male
  Weight: 60.78 kg

DRUGS (1)
  1. OPDIVO [Suspect]
     Active Substance: NIVOLUMAB
     Indication: LUNG NEOPLASM MALIGNANT
     Dosage: 3 MG/KG, Q2WK
     Route: 042

REACTIONS (15)
  - Dysphonia [Unknown]
  - Alopecia [Unknown]
  - Temperature intolerance [Unknown]
  - Arthralgia [Unknown]
  - Fatigue [Unknown]
  - Headache [Unknown]
  - Cough [Unknown]
  - Pyrexia [Unknown]
  - Vomiting [Unknown]
  - Abdominal pain upper [Unknown]
  - Mood altered [Unknown]
  - Weight decreased [Unknown]
  - Decreased appetite [Unknown]
  - Nausea [Unknown]
  - Dyspnoea [Unknown]
